FAERS Safety Report 14169137 (Version 1)
Quarter: 2017Q4

REPORT INFORMATION
  Report Type: Spontaneous
  Country: JP (occurrence: JP)
  Receive Date: 20171107
  Receipt Date: 20171107
  Transmission Date: 20180321
  Serious: Yes (Other)
  Sender: FDA-Public Use
  Company Number: JP-SA-2017SA214589

PATIENT
  Sex: Female

DRUGS (2)
  1. TAXOTERE [Suspect]
     Active Substance: DOCETAXEL
     Route: 042
  2. TAXOTERE [Suspect]
     Active Substance: DOCETAXEL
     Route: 042

REACTIONS (5)
  - Dyspnoea [Unknown]
  - Haematoma [Unknown]
  - Nail disorder [Unknown]
  - Haemorrhage [Unknown]
  - Heart rate increased [Unknown]

NARRATIVE: CASE EVENT DATE: 201709
